FAERS Safety Report 9785709 (Version 1)
Quarter: 2013Q4

REPORT INFORMATION
  Report Type: Spontaneous
  Country: IT (occurrence: IT)
  Receive Date: 20131227
  Receipt Date: 20131227
  Transmission Date: 20140711
  Serious: Yes (Other)
  Sender: FDA-Public Use
  Company Number: IT-ASTRAZENECA-2013SE93318

PATIENT
  Age: 20096 Day
  Sex: Female

DRUGS (8)
  1. BUDESONIDE [Suspect]
     Indication: COLITIS MICROSCOPIC
     Route: 048
     Dates: start: 20130430, end: 20130601
  2. KIVEXA [Concomitant]
     Indication: ACQUIRED IMMUNODEFICIENCY SYNDROME
     Dosage: 300+600 MG
  3. VIRAMUNE [Concomitant]
     Indication: ACQUIRED IMMUNODEFICIENCY SYNDROME
  4. SPIRIVA [Concomitant]
  5. RISPERDAL [Concomitant]
  6. FORMOTEROL [Concomitant]
  7. LOSARTAN [Concomitant]
  8. HCTZ [Concomitant]

REACTIONS (2)
  - Hypoaesthesia [Unknown]
  - Tremor [Unknown]
